FAERS Safety Report 10493863 (Version 1)
Quarter: 2014Q4

REPORT INFORMATION
  Report Type: Spontaneous
  Country: US (occurrence: US)
  Receive Date: 20141003
  Receipt Date: 20141003
  Transmission Date: 20150528
  Serious: Yes (Hospitalization, Other)
  Sender: FDA-Public Use
  Company Number: US-GLENMARK GENERICS INC.-2014GMK011282

PATIENT
  Sex: Female
  Weight: 61.22 kg

DRUGS (9)
  1. LUPRON DEPOT-PED [Suspect]
     Active Substance: LEUPROLIDE ACETATE
     Dosage: 2 DF, EVERY 3 MONTHS
     Route: 030
     Dates: start: 2010, end: 2010
  2. NORETHINDRONE ACETATE TABLETS [Suspect]
     Active Substance: NORETHINDRONE ACETATE
     Indication: ENDOMETRIOSIS
     Dosage: 5 MG, OD
     Route: 048
     Dates: start: 2010, end: 2011
  3. LUPRON DEPOT-PED [Suspect]
     Active Substance: LEUPROLIDE ACETATE
     Dosage: 2 DF, EVERY 3 MONTHS
     Route: 030
     Dates: start: 201310, end: 201401
  4. LUPRON DEPOT-PED [Suspect]
     Active Substance: LEUPROLIDE ACETATE
     Indication: ENDOMETRIOSIS
     Dosage: 2 DF, EVERY 3 MONTHS
     Dates: start: 2004, end: 2004
  5. LUPRON DEPOT-PED [Suspect]
     Active Substance: LEUPROLIDE ACETATE
     Dosage: 2 DF, EVERY 3 MONTHS
     Route: 030
     Dates: start: 200712, end: 200802
  6. LUPRON DEPOT-PED [Suspect]
     Active Substance: LEUPROLIDE ACETATE
     Dosage: UNK, EVERY 3 MONTHS
     Route: 030
     Dates: start: 2012, end: 2012
  7. LUPRON DEPOT-PED [Suspect]
     Active Substance: LEUPROLIDE ACETATE
     Indication: ENDOMETRIOSIS
     Dosage: 3.75 MG, SINGLE
     Route: 030
     Dates: start: 2004, end: 2004
  8. PROGESTERONE. [Suspect]
     Active Substance: PROGESTERONE
     Indication: CONTRACEPTION
     Dosage: UNK
     Route: 048
  9. ALEVE [Concomitant]
     Active Substance: NAPROXEN SODIUM
     Indication: ABDOMINAL PAIN
     Dosage: UNK, PRN

REACTIONS (9)
  - Abdominal pain [Not Recovered/Not Resolved]
  - Menorrhagia [Not Recovered/Not Resolved]
  - Urinary tract infection [Recovered/Resolved]
  - Dysuria [Not Recovered/Not Resolved]
  - Weight increased [Recovered/Resolved]
  - Therapeutic response unexpected [Not Recovered/Not Resolved]
  - Abdominal pain lower [Recovered/Resolved]
  - Weight decreased [Not Recovered/Not Resolved]
  - Uterine adhesions [Not Recovered/Not Resolved]

NARRATIVE: CASE EVENT DATE: 2004
